FAERS Safety Report 6097520-3 (Version None)
Quarter: 2009Q1

REPORT INFORMATION
  Report Type: 
  Country: None (occurrence: None)
  Receive Date: 20090227
  Receipt Date: 20081219
  Transmission Date: 20090719
  Serious: Yes (Other)
  Sender: FDA-Public Use
  Company Number: A0747793A

PATIENT
  Sex: Female

DRUGS (5)
  1. IMITREX [Suspect]
     Indication: MIGRAINE
     Dosage: 5MG UNKNOWN
     Route: 058
     Dates: start: 19950101, end: 19950101
  2. IMITREX [Suspect]
     Dosage: 1TAB UNKNOWN
     Route: 048
     Dates: start: 19950101, end: 19950101
  3. GSK AUTOINJECTOR [Suspect]
  4. CALAN [Concomitant]
  5. XANAX [Concomitant]

REACTIONS (7)
  - CHEST DISCOMFORT [None]
  - CHEST PAIN [None]
  - DIZZINESS [None]
  - DRUG INEFFECTIVE [None]
  - GASTRIC DISORDER [None]
  - HYPERTENSION [None]
  - TREMOR [None]
